FAERS Safety Report 15602215 (Version 1)
Quarter: 2018Q4

REPORT INFORMATION
  Report Type: Spontaneous
  Country: KW (occurrence: KW)
  Receive Date: 20181109
  Receipt Date: 20181109
  Transmission Date: 20190205
  Serious: Yes (Hospitalization, Other)
  Sender: FDA-Public Use
  Company Number: KW-AMGEN-KWTSP2018155945

PATIENT
  Age: 45 Year
  Sex: Male

DRUGS (3)
  1. CYCLOPHOSPHAMIDE W/DEXAMETHASONE/THALIDOMIDE [Concomitant]
     Indication: PLASMA CELL MYELOMA
     Dosage: UNK
     Dates: start: 20181014, end: 20181026
  2. XGEVA [Suspect]
     Active Substance: DENOSUMAB
     Indication: PLASMA CELL MYELOMA
     Dosage: 120 MG, UNK
     Route: 058
     Dates: start: 20181008
  3. CALCIUM CHLORIDE. [Concomitant]
     Active Substance: CALCIUM CHLORIDE
     Indication: PREOPERATIVE CARE
     Dosage: UNK
     Dates: start: 20181027, end: 20181028

REACTIONS (3)
  - Hypocalcaemia [Recovered/Resolved]
  - Off label use [Unknown]
  - Spinal compression fracture [Unknown]

NARRATIVE: CASE EVENT DATE: 20181008
